FAERS Safety Report 10756241 (Version 2)
Quarter: 2015Q1

REPORT INFORMATION
  Report Type: Spontaneous
  Country: US (occurrence: US)
  Receive Date: 20150202
  Receipt Date: 20150331
  Transmission Date: 20150721
  Serious: Yes (Hospitalization)
  Sender: FDA-Public Use
  Company Number: US-PFIZER INC-2015037235

PATIENT
  Age: 36 Year
  Sex: Female

DRUGS (10)
  1. METHOTREXATE SODIUM. [Suspect]
     Active Substance: METHOTREXATE SODIUM
     Indication: PSORIASIS
     Dosage: 12.5 MG, WEEKLY, (5 MG THE FIRST MORNING, 5 MG 12 HOURS LATER, AND 2.5 MG ANOTHER 12 HOURS LATER)
  2. METHOXSALEN. [Concomitant]
     Active Substance: METHOXSALEN
     Dosage: UNK UNK, 2 TO 3 TIMES WEEKLY
  3. PREDNISONE. [Concomitant]
     Active Substance: PREDNISONE
     Indication: PSORIASIS
     Dosage: UNK UNK, SINGLE
  4. FUROSEMID [Concomitant]
     Active Substance: FUROSEMIDE
  5. CALCIPOTRIOL [Concomitant]
     Active Substance: CALCIPOTRIENE
     Dosage: UNK
  6. IBUPROFEN. [Suspect]
     Active Substance: IBUPROFEN
     Dosage: UNK
  7. AZITHROMYCIN DIHYDRATE. [Concomitant]
     Active Substance: AZITHROMYCIN DIHYDRATE
     Indication: CELLULITIS
     Dosage: UNK UNK, SINGLE
  8. METOPROLOL TARTRATE. [Concomitant]
     Active Substance: METOPROLOL TARTRATE
  9. TRIAMCINOLONE ACETONIDE. [Concomitant]
     Active Substance: TRIAMCINOLONE ACETONIDE
  10. METHOTREXATE SODIUM. [Suspect]
     Active Substance: METHOTREXATE SODIUM
     Indication: PSORIATIC ARTHROPATHY
     Dosage: 17.5 MG, WEEKLY

REACTIONS (1)
  - Mucocutaneous ulceration [Recovered/Resolved]
